FAERS Safety Report 6863639-X (Version None)
Quarter: 2010Q3

REPORT INFORMATION
  Report Type: 
  Country: None (occurrence: None)
  Receive Date: 20100721
  Receipt Date: 20080307
  Transmission Date: 20110219
  Serious: No
  Sender: FDA-Public Use
  Company Number: US-PFIZER INC-2008022469

PATIENT
  Sex: Male

DRUGS (2)
  1. CHANTIX [Suspect]
     Dates: start: 20080131
  2. NAPROXEN [Concomitant]
     Indication: TENDONITIS

REACTIONS (2)
  - ABDOMINAL PAIN [None]
  - ABDOMINAL PAIN UPPER [None]
